FAERS Safety Report 24754581 (Version 1)
Quarter: 2024Q4

REPORT INFORMATION
  Report Type: Spontaneous
  Country: US (occurrence: None)
  Receive Date: 20241218
  Receipt Date: 20241218
  Transmission Date: 20250114
  Serious: Yes (Disabling)
  Sender: Public
  Company Number: None

PATIENT
  Age: 72 Year
  Sex: Female
  Weight: 67.5 kg

DRUGS (17)
  1. BUSPIRONE HYDROCHLORIDE [Suspect]
     Active Substance: BUSPIRONE HYDROCHLORIDE
     Indication: Irritable bowel syndrome
     Dosage: OTHER QUANTITY : 1 TABLET(S);?FREQUENCY : TWICE A DAY;?
     Route: 048
     Dates: start: 20040101
  2. ESCITALOPRAM [Concomitant]
     Active Substance: ESCITALOPRAM OXALATE
  3. PCN VK [Concomitant]
  4. DOXEPIN [Concomitant]
     Active Substance: DOXEPIN
  5. MYRBETRIQ [Concomitant]
     Active Substance: MIRABEGRON
  6. LEVOMEFOLIC ACID\METHYLCOBALAMIN\TURMERIC [Concomitant]
     Active Substance: LEVOMEFOLIC ACID\METHYLCOBALAMIN\TURMERIC
  7. METHOTREXATE [Concomitant]
     Active Substance: METHOTREXATE
  8. CALCIUM CARBONATE [Concomitant]
     Active Substance: CALCIUM CARBONATE
  9. ALLEGRA [Concomitant]
     Active Substance: FEXOFENADINE HYDROCHLORIDE
  10. IRON [Concomitant]
     Active Substance: IRON
  11. NEXIUM [Concomitant]
     Active Substance: ESOMEPRAZOLE MAGNESIUM
  12. VITAMIN D3 [Concomitant]
     Active Substance: CHOLECALCIFEROL
  13. ALBUTEROL INHALER PRN [Concomitant]
  14. IBUPROFEN [Concomitant]
     Active Substance: IBUPROFEN
  15. NAPROXEN [Concomitant]
     Active Substance: NAPROXEN
  16. BENADRYL [Concomitant]
     Active Substance: DIPHENHYDRAMINE HYDROCHLORIDE
  17. SUDAFED [Concomitant]
     Active Substance: PSEUDOEPHEDRINE HYDROCHLORIDE

REACTIONS (3)
  - Dyskinesia [None]
  - Tardive dyskinesia [None]
  - Bruxism [None]

NARRATIVE: CASE EVENT DATE: 20240909
